FAERS Safety Report 9563249 (Version 1)
Quarter: 2013Q3

REPORT INFORMATION
  Report Type: Spontaneous
  Country: GB (occurrence: GB)
  Receive Date: 20130927
  Receipt Date: 20130927
  Transmission Date: 20140515
  Serious: Yes (Other)
  Sender: FDA-Public Use
  Company Number: GB-BANPHARM-20131729

PATIENT
  Age: 49 Year
  Sex: Male
  Weight: 76.2 kg

DRUGS (3)
  1. IBUPROFEN UNKNOWN PRODUCT [Suspect]
     Dates: start: 20130906
  2. LOPERAMIDE [Concomitant]
     Dates: start: 20130906
  3. SALBUTAMOL [Concomitant]
     Dates: start: 20130906

REACTIONS (2)
  - Dyspnoea [Recovered/Resolved]
  - Asthma [Unknown]
